FAERS Safety Report 4540772-9 (Version None)
Quarter: 2004Q4

REPORT INFORMATION
  Report Type: 
  Country: None (occurrence: None)
  Receive Date: 20041222
  Receipt Date: 20041201
  Transmission Date: 20050328
  Serious: Yes (Death, Life-Threatening, Hospitalization, Other)
  Sender: FDA-Public Use
  Company Number: EWC041241687

PATIENT
  Age: 77 Year
  Sex: Male

DRUGS (6)
  1. GEMCITABINE HYDROCHLORIDE-IV (GEMCITABINE) [Suspect]
     Indication: LUNG NEOPLASM MALIGNANT
     Dosage: 1900 MG/2 OTHER
     Route: 050
     Dates: start: 20040611, end: 20040618
  2. CISPLATIN [Concomitant]
  3. GRANISETRON [Concomitant]
  4. DEXAMETHASONE [Concomitant]
  5. CODEIN (CODEINE PHOSPHATE HEMIHYDRATE) [Concomitant]
  6. DEXTROMETHORPHAN HYDROBROMIDE [Concomitant]

REACTIONS (4)
  - CEREBRAL INFARCTION [None]
  - MENTAL STATUS CHANGES [None]
  - PNEUMONIA ASPIRATION [None]
  - SEPTIC SHOCK [None]
